FAERS Safety Report 7306577-0 (Version None)
Quarter: 2011Q1

REPORT INFORMATION
  Report Type: 
  Country: None (occurrence: None)
  Receive Date: 20110222
  Receipt Date: 20110209
  Transmission Date: 20110831
  Serious: Yes (Hospitalization)
  Sender: FDA-Public Use
  Company Number: CH-SANOFI-AVENTIS-2011SA008477

PATIENT
  Age: 78 Year
  Sex: Male

DRUGS (5)
  1. PLAVIX [Suspect]
     Route: 048
  2. AMLODIPINE BESILATE [Concomitant]
  3. IRBESARTAN AND HYDROCHLOROTHIAZIDE [Concomitant]
  4. ASPIRIN [Suspect]
     Route: 048
     Dates: end: 20101201
  5. TENORMIN [Concomitant]

REACTIONS (1)
  - ANAEMIA [None]
